FAERS Safety Report 5465950-6 (Version None)
Quarter: 2007Q3

REPORT INFORMATION
  Report Type: 
  Country: None (occurrence: None)
  Receive Date: 20070924
  Receipt Date: 20070913
  Transmission Date: 20080115
  Serious: Yes (Hospitalization)
  Sender: FDA-Public Use
  Company Number: JP-ASTRAZENECA-2007AP03203

PATIENT
  Age: 31181 Day
  Sex: Male
  Weight: 57 kg

DRUGS (14)
  1. CRESTOR [Suspect]
     Indication: HYPERLIPIDAEMIA
     Dosage: 2.5 MG ALTERNATE DAY DOSE
     Route: 048
     Dates: end: 20070527
  2. UBRETID [Suspect]
     Indication: BENIGN PROSTATIC HYPERPLASIA
     Route: 048
     Dates: end: 20070527
  3. UBRETID [Suspect]
     Indication: DYSURIA
     Route: 048
     Dates: end: 20070527
  4. FLIVAS [Concomitant]
     Indication: BENIGN PROSTATIC HYPERPLASIA
     Route: 048
     Dates: end: 20070527
  5. FLIVAS [Concomitant]
     Indication: DYSURIA
     Route: 048
     Dates: end: 20070527
  6. PROSTAL [Concomitant]
     Indication: BENIGN PROSTATIC HYPERPLASIA
     Route: 048
     Dates: end: 20070527
  7. PROSTAL [Concomitant]
     Indication: DYSURIA
     Route: 048
     Dates: end: 20070527
  8. ACTONEL [Concomitant]
     Indication: OSTEOPOROSIS
     Route: 048
     Dates: end: 20070527
  9. CALFINA [Concomitant]
     Indication: OSTEOPOROSIS
     Route: 048
     Dates: end: 20070527
  10. AMLODIPINE [Concomitant]
     Indication: HYPERTENSION
     Route: 048
     Dates: end: 20070527
  11. FRANDOL [Concomitant]
     Indication: ANGINA PECTORIS
     Dates: end: 20070527
  12. ANPLAG [Concomitant]
     Indication: ARTERIOSCLEROSIS OBLITERANS
     Route: 048
     Dates: end: 20070527
  13. SLOW-K [Concomitant]
     Indication: HYPOKALAEMIA
     Route: 048
     Dates: end: 20070527
  14. SIGMART [Concomitant]
     Indication: ANGINA PECTORIS
     Route: 048
     Dates: end: 20070527

REACTIONS (2)
  - PERIPHERAL ARTERIAL OCCLUSIVE DISEASE [None]
  - RHABDOMYOLYSIS [None]
